FAERS Safety Report 13928588 (Version 1)
Quarter: 2017Q3

REPORT INFORMATION
  Report Type: Spontaneous
  Country: US (occurrence: US)
  Receive Date: 20170901
  Receipt Date: 20170901
  Transmission Date: 20171127
  Serious: No
  Sender: FDA-Public Use
  Company Number: US-BAYER-2017-164412

PATIENT
  Age: 63 Year
  Sex: Male
  Weight: 80 kg

DRUGS (1)
  1. MIRALAX [Suspect]
     Active Substance: POLYETHYLENE GLYCOL 3350
     Dosage: A CAP FULL A DAY DOSE
     Route: 048
     Dates: start: 201610, end: 20170825

REACTIONS (4)
  - Product use issue [Unknown]
  - Incorrect drug administration duration [Unknown]
  - Poor quality drug administered [Unknown]
  - Product physical issue [Unknown]

NARRATIVE: CASE EVENT DATE: 201610
